FAERS Safety Report 14637165 (Version 7)
Quarter: 2018Q2

REPORT INFORMATION
  Report Type: Report from Study
  Country: CH (occurrence: CH)
  Receive Date: 20180314
  Receipt Date: 20180507
  Transmission Date: 20180711
  Serious: Yes (Hospitalization, Disabling)
  Sender: FDA-Public Use
  Company Number: CH-AMGEN-CHECT2018023003

PATIENT
  Age: 69 Year
  Sex: Female
  Weight: 88.3 kg

DRUGS (17)
  1. PEMBROLIZUMAB. [Suspect]
     Active Substance: PEMBROLIZUMAB
     Indication: MALIGNANT MELANOMA
     Dosage: UNK
     Route: 042
     Dates: start: 20170213, end: 20171002
  2. NACL [Concomitant]
     Active Substance: SODIUM CHLORIDE
     Dosage: 500-1000 ML, UNK
     Route: 042
     Dates: start: 20171129
  3. TALIMOGENE LAHERPAREPVEC [Suspect]
     Active Substance: TALIMOGENE LAHERPAREPVEC
     Indication: MALIGNANT MELANOMA
     Dosage: UNK
     Route: 026
     Dates: start: 20170213, end: 20170619
  4. PREDNISONE. [Concomitant]
     Active Substance: PREDNISONE
     Dosage: 60-80 MG, UNK
     Route: 048
     Dates: start: 20171222, end: 20180107
  5. PRURI-MED [Concomitant]
     Dosage: 1 UNK, UNK
     Route: 061
     Dates: start: 20170327, end: 20171129
  6. ESOMEPRAZOLE [Concomitant]
     Active Substance: ESOMEPRAZOLE
     Dosage: 40 MG, UNK
     Route: 048
     Dates: start: 2014
  7. SOLU-MEDROL [Concomitant]
     Active Substance: METHYLPREDNISOLONE SODIUM SUCCINATE
     Indication: PERIPHERAL SENSORIMOTOR NEUROPATHY
     Dosage: 1000 MG, UNK
     Route: 042
     Dates: start: 20171214
  8. BACTRIM [Concomitant]
     Active Substance: SULFAMETHOXAZOLE\TRIMETHOPRIM
     Dosage: 1 UNK, UNK
     Route: 048
     Dates: start: 20171215
  9. DERMOVATE [Concomitant]
     Active Substance: CLOBETASOL
     Dosage: 1 UNK, UNK
     Route: 061
     Dates: start: 20171023, end: 20171129
  10. POTASSIUM CHLORIDE. [Concomitant]
     Active Substance: POTASSIUM CHLORIDE
     Dosage: 1 UNK, UNK
     Route: 048
     Dates: start: 20171216
  11. IRBESARTAN. [Concomitant]
     Active Substance: IRBESARTAN
     Dosage: 1 UNK, UNK
     Route: 048
     Dates: start: 2014, end: 20171129
  12. CALCIMAGON-D3 [Concomitant]
     Active Substance: CALCIUM\CHOLECALCIFEROL
     Dosage: 1 UNK, UNK
     Route: 048
     Dates: start: 20171215
  13. ACICLOVIR [Concomitant]
     Active Substance: ACYCLOVIR
     Dosage: 500 MG, UNK
     Route: 042
     Dates: start: 20171215
  14. POTASSIUM [Concomitant]
     Active Substance: POTASSIUM
     Dosage: 1 UNK, UNK
     Route: 048
     Dates: start: 20171201, end: 20171206
  15. ELOCOM [Concomitant]
     Active Substance: MOMETASONE FUROATE
     Dosage: 1 UNK, UNK
     Route: 061
     Dates: start: 20170327, end: 20171129
  16. CLEXANE [Concomitant]
     Active Substance: ENOXAPARIN SODIUM
     Dosage: 80 MG, UNK
     Route: 058
     Dates: start: 20171209
  17. DAFALGAN [Concomitant]
     Active Substance: ACETAMINOPHEN
     Dosage: 1 G, UNK
     Route: 048
     Dates: start: 20170529

REACTIONS (1)
  - Peripheral sensorimotor neuropathy [Not Recovered/Not Resolved]

NARRATIVE: CASE EVENT DATE: 20180216
